FAERS Safety Report 19960714 (Version 4)
Quarter: 2025Q1

REPORT INFORMATION
  Report Type: Spontaneous
  Country: US (occurrence: US)
  Receive Date: 20211016
  Receipt Date: 20250222
  Transmission Date: 20250409
  Serious: Yes (Other)
  Sender: ROCHE
  Company Number: US-ROCHE-2932971

PATIENT
  Age: 78 Year
  Sex: Male

DRUGS (23)
  1. AVASTIN [Suspect]
     Active Substance: BEVACIZUMAB
     Indication: Product used for unknown indication
     Route: 065
  2. ONDANSETRON [Suspect]
     Active Substance: ONDANSETRON
     Indication: Product used for unknown indication
     Route: 065
  3. LONSURF [Suspect]
     Active Substance: TIPIRACIL HYDROCHLORIDE\TRIFLURIDINE
     Indication: Colon cancer metastatic
     Route: 048
     Dates: start: 20210729
  4. BENZONATATE [Concomitant]
     Active Substance: BENZONATATE
  5. FLUTICASONE [Concomitant]
     Active Substance: FLUTICASONE
  6. GABAPENTIN [Concomitant]
     Active Substance: GABAPENTIN
  7. ARTIFICIAL TEARS [PROPYLENE GLYCOL] [Concomitant]
  8. FLOMAX [Concomitant]
     Active Substance: TAMSULOSIN HYDROCHLORIDE
  9. TRAMADOL [Concomitant]
     Active Substance: TRAMADOL
  10. ZOFRAN [Concomitant]
     Active Substance: ONDANSETRON HYDROCHLORIDE
  11. OMEPRAZOLE [Concomitant]
     Active Substance: OMEPRAZOLE
  12. NEURONTIN [Concomitant]
     Active Substance: GABAPENTIN
  13. BREO ELLIPTA [Concomitant]
     Active Substance: FLUTICASONE FUROATE\VILANTEROL TRIFENATATE
  14. ADVAIR DISKUS [Concomitant]
     Active Substance: FLUTICASONE PROPIONATE\SALMETEROL XINAFOATE
  15. EMLA [Concomitant]
     Active Substance: LIDOCAINE\PRILOCAINE
  16. ATIVAN [Concomitant]
     Active Substance: LORAZEPAM
  17. CHLORHEXIDINE [Concomitant]
     Active Substance: CHLORHEXIDINE
  18. TUSSIONEX PENNKINETIC [Concomitant]
     Active Substance: CHLORPHENIRAMINE\HYDROCODONE
  19. DEXAMETHASONE [Concomitant]
     Active Substance: DEXAMETHASONE
  20. SODIUM CHLORIDE [Concomitant]
     Active Substance: SODIUM CHLORIDE
  21. PHENERGAN [Concomitant]
     Active Substance: PROMETHAZINE HYDROCHLORIDE
  22. COVID-19 VACCINE [Concomitant]
  23. HYDROCODONE [Concomitant]
     Active Substance: HYDROCODONE

REACTIONS (16)
  - Radiation oedema [Unknown]
  - Carcinoembryonic antigen decreased [Recovering/Resolving]
  - Neuropathy peripheral [Not Recovered/Not Resolved]
  - Faeces hard [Unknown]
  - Amnesia [Unknown]
  - Productive cough [Recovering/Resolving]
  - Cough [Recovering/Resolving]
  - Fall [Unknown]
  - Insomnia [Recovering/Resolving]
  - Constipation [Unknown]
  - Abdominal discomfort [Unknown]
  - Asthenia [Unknown]
  - Nausea [Not Recovered/Not Resolved]
  - Decreased appetite [Not Recovered/Not Resolved]
  - Fatigue [Not Recovered/Not Resolved]
  - Diarrhoea [Unknown]

NARRATIVE: CASE EVENT DATE: 20210803
